FAERS Safety Report 4751460-8 (Version None)
Quarter: 2005Q3

REPORT INFORMATION
  Report Type: 
  Country: None (occurrence: None)
  Receive Date: 20050822
  Receipt Date: 20050808
  Transmission Date: 20060218
  Serious: Yes (Other)
  Sender: FDA-Public Use
  Company Number: SUS1-2005-00602

PATIENT
  Age: 36 Year
  Sex: Male
  Weight: 129.7 kg

DRUGS (4)
  1. EQUETRO [Suspect]
     Indication: BIPOLAR DISORDER
     Dosage: 200 MG, 1X/DAY. QD, ORAL
     Route: 048
     Dates: start: 20050804, end: 20050805
  2. EQUETRO [Suspect]
     Indication: BIPOLAR DISORDER
     Dosage: 200 MG, 1X/DAY. QD, ORAL
     Route: 048
     Dates: start: 20050808
  3. SEROQUEL [Suspect]
     Indication: BIPOLAR DISORDER
     Dosage: 300 MG, 1X/DAY: QD, ORAL
     Route: 048
     Dates: start: 20000101
  4. LANTUS [Concomitant]

REACTIONS (2)
  - ERECTILE DYSFUNCTION [None]
  - PRIAPISM [None]
